FAERS Safety Report 11603373 (Version 2)
Quarter: 2015Q4

REPORT INFORMATION
  Report Type: Spontaneous
  Country: US (occurrence: US)
  Receive Date: 20151007
  Receipt Date: 20151109
  Transmission Date: 20160304
  Serious: Yes (Hospitalization)
  Sender: FDA-Public Use
  Company Number: US-AUROBINDO-AUR-APL-2015-08747

PATIENT
  Age: 53 Year
  Sex: Male

DRUGS (1)
  1. MINOCYCLINE [Suspect]
     Active Substance: MINOCYCLINE\MINOCYCLINE HYDROCHLORIDE
     Indication: ACNE
     Dosage: 10 MG, DAILY
     Route: 065

REACTIONS (8)
  - Acne [Unknown]
  - Ascites [Unknown]
  - Skin hyperpigmentation [Unknown]
  - Skin lesion [Unknown]
  - Pigmentation disorder [Unknown]
  - Ocular icterus [Unknown]
  - Skin discolouration [Unknown]
  - Generalised oedema [Unknown]
